FAERS Safety Report 8737819 (Version 2)
Quarter: 2012Q4

REPORT INFORMATION
  Report Type: 
  Country: US (occurrence: US)
  Receive Date: 20120822
  Receipt Date: 20120911
  Transmission Date: 20130627
  Serious: No
  Sender: FDA-Public Use
  Company Number: US-009507513-1208USA001912

PATIENT

DRUGS (1)
  1. IMPLANON [Suspect]
     Indication: CONTRACEPTION
     Dosage: Single rod
     Route: 059
     Dates: start: 20120224, end: 20120803

REACTIONS (4)
  - Metrorrhagia [Unknown]
  - Menorrhagia [Unknown]
  - Device difficult to use [Recovered/Resolved]
  - Medical device complication [Unknown]
